FAERS Safety Report 4557010-3 (Version None)
Quarter: 2005Q1

REPORT INFORMATION
  Report Type: 
  Country: None (occurrence: None)
  Receive Date: 20050118
  Receipt Date: 20050105
  Transmission Date: 20050727
  Serious: Yes (Hospitalization)
  Sender: FDA-Public Use
  Company Number: 2005006465

PATIENT
  Age: 82 Year
  Sex: Female

DRUGS (3)
  1. DIFLUCAN [Suspect]
     Indication: ILL-DEFINED DISORDER
     Dosage: 50 MG (1 D), ORAL
     Route: 048
     Dates: start: 20041028, end: 20041103
  2. CLAVULIN (AMOXICILLIN TRIHYDRATE, CLAVULANATE POTASSIUM) [Suspect]
     Indication: ILL-DEFINED DISORDER
     Dosage: 3 GRAM (1 D), ORAL
     Route: 048
     Dates: start: 20041019, end: 20041102
  3. OFLOXACIN [Suspect]
     Indication: ILL-DEFINED DISORDER
     Dosage: 400 MG (1 D), ORAL
     Route: 048
     Dates: start: 20041019, end: 20041102

REACTIONS (2)
  - LUNG DISORDER [None]
  - PANCYTOPENIA [None]
